FAERS Safety Report 23658062 (Version 1)
Quarter: 2024Q1

REPORT INFORMATION
  Report Type: Spontaneous
  Country: US (occurrence: US)
  Receive Date: 20240321
  Receipt Date: 20240321
  Transmission Date: 20240410
  Serious: Yes (Other)
  Sender: FDA-Public Use
  Company Number: US-PFIZER INC-PV202400037713

PATIENT
  Age: 69 Year
  Sex: Female
  Weight: 56.689 kg

DRUGS (1)
  1. PAXLOVID [Suspect]
     Active Substance: NIRMATRELVIR\RITONAVIR
     Indication: COVID-19 treatment
     Dosage: UNK, TWICE DAILY
     Dates: start: 20240301, end: 20240301

REACTIONS (4)
  - Product size issue [Unknown]
  - Dysphagia [Recovered/Resolved]
  - Foreign body in throat [Unknown]
  - Choking [Unknown]

NARRATIVE: CASE EVENT DATE: 20240301
